FAERS Safety Report 12694288 (Version 7)
Quarter: 2019Q3

REPORT INFORMATION
  Report Type: Spontaneous
  Country: US (occurrence: US)
  Receive Date: 20160829
  Receipt Date: 20190705
  Transmission Date: 20191004
  Serious: No
  Sender: FDA-Public Use
  Company Number: US-PFIZER INC-2016405915

PATIENT
  Age: 62 Year
  Sex: Female
  Weight: 71 kg

DRUGS (4)
  1. LAMICTAL [Concomitant]
     Active Substance: LAMOTRIGINE
     Indication: DEPRESSION
     Dosage: UNK
  2. CELEXA [Concomitant]
     Active Substance: CITALOPRAM HYDROBROMIDE
     Indication: DEPRESSION
     Dosage: UNK
  3. XANAX [Concomitant]
     Active Substance: ALPRAZOLAM
     Indication: DEPRESSION
     Dosage: UNK
  4. XELJANZ XR [Suspect]
     Active Substance: TOFACITINIB CITRATE
     Dosage: 11 MG, 1X/DAY
     Route: 048

REACTIONS (14)
  - Sinusitis [Unknown]
  - Pain [Unknown]
  - Sleep disorder [Unknown]
  - Pain in extremity [Unknown]
  - Emotional disorder [Unknown]
  - Weight increased [Unknown]
  - Feeling abnormal [Unknown]
  - Arthropathy [Unknown]
  - Mental disorder [Unknown]
  - Asthenia [Unknown]
  - Malaise [Unknown]
  - Expired product administered [Unknown]
  - General physical health deterioration [Unknown]
  - Intentional product misuse [Unknown]
